FAERS Safety Report 4983988-X (Version None)
Quarter: 2006Q2

REPORT INFORMATION
  Report Type: 
  Country: None (occurrence: None)
  Receive Date: 20060426
  Receipt Date: 20051006
  Transmission Date: 20061013
  Serious: Yes (Hospitalization, Disabling, Other)
  Sender: FDA-Public Use
  Company Number: US-MERCK-0510USA05965

PATIENT
  Age: 53 Year
  Sex: Female
  Weight: 100 kg

DRUGS (7)
  1. VIOXX [Suspect]
     Indication: BACK PAIN
     Route: 048
     Dates: start: 20010101, end: 20010701
  2. VIOXX [Suspect]
     Route: 048
     Dates: start: 20010601
  3. VIOXX [Suspect]
     Route: 048
     Dates: start: 20010701
  4. VIOXX [Suspect]
     Route: 048
     Dates: start: 20010701
  5. VIOXX [Suspect]
     Route: 048
     Dates: start: 20030501
  6. ZOLOFT [Concomitant]
     Route: 065
  7. ZOCOR [Concomitant]
     Route: 065

REACTIONS (22)
  - ALCOHOL POISONING [None]
  - ASTHENIA [None]
  - BACK PAIN [None]
  - CALCULUS BLADDER [None]
  - CALCULUS URETERIC [None]
  - CAROTID ARTERY DISEASE [None]
  - CAROTID ARTERY OCCLUSION [None]
  - CEREBRAL ISCHAEMIA [None]
  - CEREBROVASCULAR ACCIDENT [None]
  - COMPRESSION FRACTURE [None]
  - DEPRESSION [None]
  - DYSLIPIDAEMIA [None]
  - FALL [None]
  - GAIT DISTURBANCE [None]
  - HYPERTENSION [None]
  - INJURY [None]
  - LACUNAR INFARCTION [None]
  - MENTAL STATUS CHANGES [None]
  - NEPHROLITHIASIS [None]
  - PARAESTHESIA [None]
  - SPINAL COMPRESSION FRACTURE [None]
  - TRANSIENT ISCHAEMIC ATTACK [None]
